FAERS Safety Report 4581192-0 (Version None)
Quarter: 2005Q1

REPORT INFORMATION
  Report Type: 
  Country: None (occurrence: None)
  Receive Date: 20050214
  Receipt Date: 20040826
  Transmission Date: 20050727
  Serious: No
  Sender: FDA-Public Use
  Company Number: US-GLAXOSMITHKLINE-A0523716A

PATIENT
  Age: 34 Year
  Sex: Female
  Weight: 77.3 kg

DRUGS (2)
  1. LAMICTAL [Suspect]
     Dosage: 100MG PER DAY
     Route: 048
     Dates: start: 20040301, end: 20040801
  2. VALPROIC ACID [Concomitant]
     Route: 048

REACTIONS (2)
  - RASH [None]
  - RHINITIS [None]
